FAERS Safety Report 9880966 (Version 3)
Quarter: 2014Q4

REPORT INFORMATION
  Report Type: Spontaneous
  Country: US (occurrence: US)
  Receive Date: 20140207
  Receipt Date: 20141103
  Transmission Date: 20150529
  Serious: Yes (Hospitalization, Other)
  Sender: FDA-Public Use
  Company Number: US-009507513-1402USA002890

PATIENT
  Sex: Female

DRUGS (3)
  1. ZYRTEC-D [Concomitant]
     Active Substance: CETIRIZINE HYDROCHLORIDE\PSEUDOEPHEDRINE HYDROCHLORIDE
     Indication: HYPERSENSITIVITY
     Dosage: BID, PRN
  2. NUVARING [Suspect]
     Active Substance: ETHINYL ESTRADIOL\ETONOGESTREL
     Indication: PRODUCT USED FOR UNKNOWN INDICATION
     Route: 067
  3. RELAFEN [Concomitant]
     Active Substance: NABUMETONE
     Dosage: ONE, QD

REACTIONS (8)
  - Deep vein thrombosis [Unknown]
  - Prothrombin time prolonged [Unknown]
  - Hypotension [Unknown]
  - Pulmonary embolism [Unknown]
  - Varicose vein [Not Recovered/Not Resolved]
  - Cellulitis [Unknown]
  - Hypercoagulation [Unknown]
  - Thrombophlebitis [Unknown]

NARRATIVE: CASE EVENT DATE: 20080408
